FAERS Safety Report 9685167 (Version 1)
Quarter: 2013Q4

REPORT INFORMATION
  Report Type: Spontaneous
  Country: US (occurrence: None)
  Receive Date: 20131111
  Receipt Date: 20131111
  Transmission Date: 20140711
  Serious: Yes (Disabling)
  Sender: FDA-Public Use
  Company Number: None

PATIENT
  Age: 66 Year
  Sex: Female
  Weight: 102.06 kg

DRUGS (1)
  1. CIPRO [Suspect]
     Indication: CYSTITIS
     Dosage: 1 TAB, TWICE DAILY, TAKEN BY MOUTH
     Dates: start: 20130913, end: 20131004

REACTIONS (5)
  - Pain in extremity [None]
  - Arthralgia [None]
  - Myalgia [None]
  - Abasia [None]
  - Drug effect decreased [None]
